FAERS Safety Report 10482564 (Version 4)
Quarter: 2018Q4

REPORT INFORMATION
  Report Type: Report from Study
  Country: JP (occurrence: JP)
  Receive Date: 20140929
  Receipt Date: 20181031
  Transmission Date: 20190204
  Serious: Yes (Hospitalization)
  Sender: FDA-Public Use
  Company Number: JP-INCYTE CORPORATION-2014IN002230

PATIENT

DRUGS (157)
  1. JAKAVI [Suspect]
     Active Substance: RUXOLITINIB
     Dosage: 10 MG, BID
     Route: 048
     Dates: start: 20120810, end: 20121227
  2. ALDACTONE-A [Concomitant]
     Active Substance: SPIRONOLACTONE
     Indication: FACE OEDEMA
  3. LASIX [Concomitant]
     Active Substance: FUROSEMIDE
     Indication: OEDEMA
     Dosage: 10 MG, UNK
     Route: 048
     Dates: start: 20120531
  4. BAYASPIRIN [Concomitant]
     Active Substance: ASPIRIN
     Indication: CORONARY ARTERY BYPASS
     Dosage: 100 MG, UNK
     Route: 048
  5. HARNAL [Concomitant]
     Active Substance: TAMSULOSIN HYDROCHLORIDE
     Indication: BENIGN PROSTATIC HYPERPLASIA
     Dosage: 0.2 MG, UNK
     Route: 048
  6. MEDICON                            /00048102/ [Concomitant]
     Active Substance: DEXTROMETHORPHAN HYDROBROMIDE
     Indication: NASOPHARYNGITIS
     Dosage: UNK
     Route: 048
     Dates: start: 20130117, end: 20130129
  7. MUCODYNE [Concomitant]
     Active Substance: CARBOCYSTEINE
     Indication: BRONCHITIS CHRONIC
     Dosage: UNK
     Route: 048
     Dates: start: 20120126, end: 20120205
  8. ALBUMIN TANNATE [Concomitant]
     Active Substance: ALBUMIN BOVINE\TANNIC ACID
     Indication: DIARRHOEA
     Dosage: UNK
     Route: 048
     Dates: start: 20121122, end: 20121227
  9. ALBUMIN TANNATE [Concomitant]
     Active Substance: ALBUMIN BOVINE\TANNIC ACID
     Dosage: UNK
     Route: 048
     Dates: start: 20130621, end: 20131004
  10. COCARL [Concomitant]
     Active Substance: ACETAMINOPHEN
     Indication: BRONCHITIS
     Dosage: UNK
     Route: 048
     Dates: start: 20130328, end: 20130330
  11. COCARL [Concomitant]
     Active Substance: ACETAMINOPHEN
     Indication: NASOPHARYNGITIS
     Dosage: UNK
     Route: 048
     Dates: start: 20130604, end: 20130726
  12. AVALOX [Concomitant]
     Active Substance: MOXIFLOXACIN HYDROCHLORIDE
     Indication: BRONCHITIS CHRONIC
     Dosage: 400 MG, UNK
     Route: 048
     Dates: start: 20140902
  13. MIYA-BM [Concomitant]
     Active Substance: CLOSTRIDIUM BUTYRICUM SPORES STRAIN M-55
     Indication: PROPHYLAXIS AGAINST DIARRHOEA
  14. ATARAX-P                           /00058402/ [Concomitant]
     Active Substance: HYDROXYZINE HYDROCHLORIDE
     Indication: PROPHYLAXIS
     Dosage: UNK
     Route: 065
     Dates: start: 20120316, end: 20120316
  15. DICLOD [Concomitant]
     Active Substance: DICLOFENAC SODIUM
     Indication: POST PROCEDURAL COMPLICATION
     Dosage: UNK
     Route: 065
     Dates: start: 20120313, end: 20120316
  16. EMPYNASE [Concomitant]
     Active Substance: PANCRELIPASE
     Indication: TOOTH EXTRACTION
     Dosage: UNK
     Route: 065
     Dates: start: 20120827, end: 20120830
  17. HYALEIN [Concomitant]
     Active Substance: HYALURONATE SODIUM
     Indication: VISUAL ACUITY REDUCED
     Dosage: UNK
     Route: 065
     Dates: start: 20120113, end: 20120312
  18. KAKKONTO                           /07985901/ [Concomitant]
     Active Substance: HERBALS
     Indication: NASOPHARYNGITIS
     Dosage: UNK
     Route: 065
     Dates: start: 20120626, end: 20120628
  19. MEIACT [Concomitant]
     Active Substance: CEFDITOREN PIVOXIL
     Indication: CATARACT OPERATION
     Dosage: UNK
     Route: 065
     Dates: start: 20120313, end: 20120316
  20. NEOSYNESIN                         /00116302/ [Concomitant]
     Indication: PROPHYLAXIS
     Dosage: UNK
  21. SEIROGAN [Concomitant]
     Indication: DIARRHOEA
     Dosage: UNK
     Route: 065
     Dates: start: 20130601, end: 20130620
  22. VITAMEDIN                          /00176001/ [Concomitant]
     Indication: TINNITUS
     Dosage: UNK
     Route: 065
     Dates: start: 20121115
  23. JAKAVI [Suspect]
     Active Substance: RUXOLITINIB
     Dosage: 10 MG, QD
     Route: 048
     Dates: start: 20120404, end: 20120404
  24. JAKAVI [Suspect]
     Active Substance: RUXOLITINIB
     Dosage: 10 MG, BID
     Route: 048
     Dates: start: 20120628, end: 20120808
  25. JAKAVI [Suspect]
     Active Substance: RUXOLITINIB
     Dosage: 15 MG, UNK
     Route: 048
     Dates: start: 20140320, end: 20140320
  26. JAKAVI [Suspect]
     Active Substance: RUXOLITINIB
     Dosage: 5 MG, BID
     Route: 048
     Dates: start: 20140908, end: 20141009
  27. EXJADE [Suspect]
     Active Substance: DEFERASIROX
     Indication: HYPERURICAEMIA
     Dosage: UNK
     Route: 048
     Dates: start: 20140320, end: 20140815
  28. ZYLORIC [Concomitant]
     Active Substance: ALLOPURINOL
     Indication: HYPERURICAEMIA
     Dosage: 100 MG, UNK
     Route: 048
  29. MEDICON                            /00048102/ [Concomitant]
     Active Substance: DEXTROMETHORPHAN HYDROBROMIDE
     Indication: BRONCHITIS CHRONIC
     Dosage: UNK
     Route: 048
     Dates: start: 20120126, end: 20120205
  30. MUCODYNE [Concomitant]
     Active Substance: CARBOCYSTEINE
     Dosage: UNK
     Route: 048
     Dates: start: 20130307, end: 20130328
  31. MUCODYNE [Concomitant]
     Active Substance: CARBOCYSTEINE
     Dosage: UNK
     Route: 048
     Dates: start: 20130418, end: 20130510
  32. MOHRUS L [Concomitant]
     Active Substance: KETOPROFEN
     Indication: MYALGIA
     Dosage: UNK
     Route: 062
     Dates: start: 20111208, end: 20130910
  33. LOPEMIN                            /07959101/ [Concomitant]
     Active Substance: BERBERINE CHLORIDE\ENTEROCOCCUS FAECALIS\ETHACRIDINE LACTATE\LOPERAMIDE HYDROCHLORIDE
     Indication: DIARRHOEA
     Dosage: 1 MG, UNK
     Route: 048
     Dates: start: 20140710, end: 20140918
  34. COCARL [Concomitant]
     Active Substance: ACETAMINOPHEN
     Dosage: UNK
     Route: 048
     Dates: start: 20140320, end: 20140723
  35. ADETPHOS [Concomitant]
     Active Substance: ADENOSINE TRIPHOSPHATE
     Indication: TINNITUS
     Dosage: UNK
     Route: 065
     Dates: start: 20120511, end: 20120513
  36. APRICOT KERNEL WATER [Concomitant]
     Active Substance: HERBALS
     Indication: NASOPHARYNGITIS
     Dosage: UNK
     Route: 065
     Dates: start: 20130124, end: 20130129
  37. CODEINE PHOSPHATE [Concomitant]
     Active Substance: CODEINE PHOSPHATE
     Indication: BRONCHITIS
     Dosage: UNK
     Route: 065
     Dates: start: 20120706, end: 20120708
  38. FLOMOX                             /01418603/ [Concomitant]
     Active Substance: CEFCAPENE PIVOXIL HYDROCHLORIDE HYDRATE
     Indication: NASOPHARYNGITIS
     Dosage: UNK
     Route: 065
     Dates: start: 20130317, end: 20130318
  39. GENINAX [Concomitant]
     Active Substance: GARENOXACIN MESYLATE
     Indication: BRONCHITIS
     Dosage: UNK
     Route: 065
     Dates: start: 20120706, end: 20120713
  40. LUMIGAN [Concomitant]
     Active Substance: BIMATOPROST
     Indication: GLAUCOMA
     Dosage: UNK
     Route: 065
     Dates: start: 20120321, end: 20120501
  41. MEILAX [Concomitant]
     Active Substance: ETHYL LOFLAZEPATE
     Indication: ANXIETY DISORDER
     Dosage: UNK
     Route: 065
     Dates: start: 20120427, end: 20120427
  42. MEILAX [Concomitant]
     Active Substance: ETHYL LOFLAZEPATE
     Dosage: UNK
     Route: 065
     Dates: start: 20120810, end: 20140501
  43. MYTEAR                             /00883501/ [Concomitant]
     Indication: DRY EYE
     Dosage: UNK
     Route: 065
     Dates: start: 20120723
  44. TARIVID                            /00731802/ [Concomitant]
     Active Substance: OFLOXACIN
     Indication: BLEPHARITIS
     Dosage: UNK
     Route: 065
     Dates: start: 20120511
  45. JAKAVI [Suspect]
     Active Substance: RUXOLITINIB
     Dosage: 10 MG, BID
     Route: 048
     Dates: start: 20120405, end: 20120626
  46. JAKAVI [Suspect]
     Active Substance: RUXOLITINIB
     Dosage: 10 MG, QD
     Route: 048
     Dates: start: 20120809, end: 20120809
  47. JAKAVI [Suspect]
     Active Substance: RUXOLITINIB
     Dosage: 5 MG, BID
     Route: 048
     Dates: start: 20140321, end: 20140606
  48. JAKAVI [Suspect]
     Active Substance: RUXOLITINIB
     Dosage: 5 MG, BID
     Route: 048
     Dates: start: 20140608, end: 20140901
  49. JAKAVI [Suspect]
     Active Substance: RUXOLITINIB
     Dosage: 10 MG, BID
     Route: 048
     Dates: start: 20141010, end: 20141023
  50. DEPAS [Concomitant]
     Active Substance: ETIZOLAM
     Indication: ANXIETY DISORDER
     Dosage: 0.5 MG, TID
     Route: 048
     Dates: start: 20120510, end: 20130530
  51. DEPAS [Concomitant]
     Active Substance: ETIZOLAM
     Dosage: 1 MG, UNK
     Route: 048
     Dates: start: 20130531
  52. MEDICON                            /00048102/ [Concomitant]
     Active Substance: DEXTROMETHORPHAN HYDROBROMIDE
     Dosage: 15 MG, TID
     Route: 048
     Dates: start: 20131025
  53. MOHRUS L [Concomitant]
     Active Substance: KETOPROFEN
     Dosage: 40 MG, UNK
     Route: 062
     Dates: start: 20140109
  54. ALOSITOL [Concomitant]
     Active Substance: ALLOPURINOL
     Indication: HYPERURICAEMIA
     Dosage: UNK
     Route: 065
     Dates: end: 20120321
  55. BENOXIL [Concomitant]
     Active Substance: BENOXINATE HYDROCHLORIDE
     Indication: PROPHYLAXIS
     Dosage: UNK
     Route: 065
     Dates: start: 20120316, end: 20120316
  56. LAC-B [Concomitant]
     Active Substance: BIFIDOBACTERIUM SPP.
     Indication: DIARRHOEA
     Dosage: UNK
     Route: 065
     Dates: start: 20121122, end: 20130620
  57. NEW LECICARBON [Concomitant]
     Active Substance: SODIUM BICARBONATE\SODIUM PHOSPHATE, MONOBASIC
     Indication: CONSTIPATION
     Dosage: UNK
     Route: 065
     Dates: start: 20140926, end: 20141023
  58. NORSHIN                            /00575501/ [Concomitant]
     Indication: HEADACHE
     Dosage: UNK
     Route: 065
     Dates: start: 20120607, end: 20120610
  59. RINDERON A [Concomitant]
     Active Substance: BETAMETHASONE SODIUM PHOSPHATE\NEOMYCIN SULFATE
     Indication: CATARACT OPERATION
     Dosage: UNK
     Route: 065
     Dates: start: 20120313, end: 20120316
  60. TAMIFLU [Concomitant]
     Active Substance: OSELTAMIVIR PHOSPHATE
     Indication: INFLUENZA
     Dosage: UNK
     Route: 065
     Dates: start: 20120122, end: 20120125
  61. TAMIFLU [Concomitant]
     Active Substance: OSELTAMIVIR PHOSPHATE
     Dosage: UNK
     Route: 065
     Dates: start: 20130422, end: 20130426
  62. TIMOLEATE [Concomitant]
     Indication: GLAUCOMA
     Dosage: UNK
     Route: 065
     Dates: start: 20120316, end: 20120430
  63. XYLOCAINE                          /00033402/ [Concomitant]
     Active Substance: LIDOCAINE HYDROCHLORIDE
     Indication: PROCEDURAL PAIN
     Dosage: UNK
     Route: 065
     Dates: start: 20111208, end: 20111208
  64. JAKAVI [Suspect]
     Active Substance: RUXOLITINIB
     Indication: MYELOFIBROSIS
     Dosage: NO TREATMENT
     Route: 065
  65. JAKAVI [Suspect]
     Active Substance: RUXOLITINIB
     Dosage: 30 MG, QD
     Route: 048
     Dates: start: 20120113, end: 20120208
  66. JAKAVI [Suspect]
     Active Substance: RUXOLITINIB
     Dosage: 15 MG, UNK
     Route: 048
     Dates: start: 20121228, end: 20121228
  67. JAKAVI [Suspect]
     Active Substance: RUXOLITINIB
     Dosage: 5 MG, BID
     Route: 048
     Dates: start: 20121229, end: 20130103
  68. JAKAVI [Suspect]
     Active Substance: RUXOLITINIB
     Dosage: 10 MG, BID
     Route: 048
     Dates: start: 20131004, end: 20131230
  69. JAKAVI [Suspect]
     Active Substance: RUXOLITINIB
     Dosage: 5 MG, QD
     Route: 048
     Dates: start: 20140607, end: 20140607
  70. EXJADE [Suspect]
     Active Substance: DEFERASIROX
     Indication: IRON OVERLOAD
     Dosage: UNK, NO TREATMENT
     Route: 065
  71. LASIX [Concomitant]
     Active Substance: FUROSEMIDE
     Indication: HYPERTENSION
     Dosage: UNK
     Route: 048
     Dates: start: 20110202, end: 20120426
  72. MUCODYNE [Concomitant]
     Active Substance: CARBOCYSTEINE
     Indication: NASOPHARYNGITIS
     Dosage: UNK
     Route: 048
     Dates: start: 20120712, end: 20120713
  73. MUCODYNE [Concomitant]
     Active Substance: CARBOCYSTEINE
     Dosage: 250 MG, TID
     Route: 048
     Dates: start: 20130704
  74. BISOLVON [Concomitant]
     Active Substance: BROMHEXINE HYDROCHLORIDE
     Indication: BRONCHITIS CHRONIC
     Dosage: 4 MG, TID
     Route: 048
     Dates: start: 20140430
  75. ADSORBIN [Concomitant]
     Active Substance: ALUMINUM SILICATE
     Dosage: UNK
     Route: 048
     Dates: start: 20130621, end: 20131004
  76. CALONAL [Concomitant]
     Active Substance: ACETAMINOPHEN
     Indication: BRONCHITIS
     Dosage: 400 MG, UNK
     Route: 048
     Dates: start: 20140724, end: 20141009
  77. COCARL [Concomitant]
     Active Substance: ACETAMINOPHEN
     Dosage: UNK
     Route: 048
     Dates: start: 20131231, end: 20140102
  78. FLOMOX                             /01418603/ [Concomitant]
     Active Substance: CEFCAPENE PIVOXIL HYDROCHLORIDE HYDRATE
     Dosage: UNK
     Route: 065
     Dates: start: 20131226, end: 20131230
  79. LAXOBERON [Concomitant]
     Active Substance: SODIUM PICOSULFATE
     Indication: CONSTIPATION
     Dosage: UNK
  80. TIMOPTOL [Concomitant]
     Active Substance: TIMOLOL
     Indication: GLAUCOMA
     Dosage: UNK
     Route: 065
     Dates: start: 20120320, end: 20120501
  81. VOLTAREN [Concomitant]
     Active Substance: DICLOFENAC SODIUM
     Indication: HYPERURICAEMIA
     Dosage: UNK
     Route: 065
     Dates: start: 20140610, end: 20140610
  82. ZOVIRAX [Concomitant]
     Active Substance: ACYCLOVIR
     Indication: PROPHYLAXIS
     Dosage: UNK
     Route: 065
     Dates: start: 20120209, end: 20120321
  83. JAKAVI [Suspect]
     Active Substance: RUXOLITINIB
     Dosage: 15 MG, UNK
     Route: 048
     Dates: start: 20121228, end: 20121228
  84. JAKAVI [Suspect]
     Active Substance: RUXOLITINIB
     Dosage: 10 MG, BID
     Route: 048
     Dates: start: 20120628, end: 20120808
  85. JAKAVI [Suspect]
     Active Substance: RUXOLITINIB
     Dosage: 10 MG, BID
     Route: 048
     Dates: start: 20120810, end: 20121227
  86. JAKAVI [Suspect]
     Active Substance: RUXOLITINIB
     Dosage: 15 MG, UNK
     Route: 048
     Dates: start: 20130104, end: 20130104
  87. JAKAVI [Suspect]
     Active Substance: RUXOLITINIB
     Dosage: 10 MG, BID
     Route: 048
     Dates: start: 20130105, end: 20130702
  88. EXJADE [Suspect]
     Active Substance: DEFERASIROX
     Indication: HYPERURICAEMIA
     Dosage: UNK
     Route: 048
     Dates: start: 20140523
  89. ALDACTONE-A [Concomitant]
     Active Substance: SPIRONOLACTONE
     Indication: HYPERTENSION
     Dosage: UNK
     Route: 048
     Dates: start: 20110202, end: 20120510
  90. ALDACTONE-A [Concomitant]
     Active Substance: SPIRONOLACTONE
     Indication: PORTAL HYPERTENSION
     Dosage: 25 MG, UNK
     Route: 048
     Dates: start: 20120531
  91. ACINON [Concomitant]
     Active Substance: NIZATIDINE
     Indication: PROPHYLAXIS
     Dosage: 150 MG, UNK
     Route: 048
  92. VIRUHEXAL [Concomitant]
     Active Substance: ACYCLOVIR
     Indication: INFECTION PROPHYLAXIS
     Dosage: 200 MG, UNK
     Route: 048
     Dates: start: 20120209
  93. LENDORMIN [Concomitant]
     Active Substance: BROTIZOLAM
     Dosage: UNK
     Route: 048
     Dates: end: 20141013
  94. GRAMALIL [Concomitant]
     Active Substance: TIAPRIDE HYDROCHLORIDE
     Indication: INSOMNIA
     Dosage: 25 MG, UNK
     Route: 048
     Dates: start: 20140905
  95. ADOFEED [Concomitant]
     Active Substance: FLURBIPROFEN
     Indication: MYALGIA
     Dosage: UNK
     Route: 065
     Dates: start: 20130912, end: 20140109
  96. FLOMOX                             /01418603/ [Concomitant]
     Active Substance: CEFCAPENE PIVOXIL HYDROCHLORIDE HYDRATE
     Indication: BRONCHITIS
     Dosage: UNK
     Route: 065
     Dates: start: 20120317, end: 20120318
  97. FLOMOX                             /01418603/ [Concomitant]
     Active Substance: CEFCAPENE PIVOXIL HYDROCHLORIDE HYDRATE
     Indication: PROPHYLAXIS
     Dosage: UNK
     Route: 065
     Dates: start: 20120629, end: 20120703
  98. HYALONSAN [Concomitant]
     Indication: CATARACT
     Dosage: UNK
     Route: 065
     Dates: start: 20120220, end: 20120430
  99. MEILAX [Concomitant]
     Active Substance: ETHYL LOFLAZEPATE
     Dosage: UNK
     Route: 065
     Dates: start: 20120607, end: 20120610
  100. METHYCOBAL [Concomitant]
     Active Substance: METHYLCOBALAMIN
     Indication: TINNITUS
     Dosage: UNK
     Route: 065
     Dates: start: 20120511, end: 20120513
  101. OPALMON [Concomitant]
     Active Substance: LIMAPROST
     Indication: SPINAL COLUMN STENOSIS
     Dosage: UNK
     Route: 065
     Dates: start: 20121012, end: 20131010
  102. PRIMPERAN [Concomitant]
     Active Substance: METOCLOPRAMIDE HYDROCHLORIDE
     Indication: VERTIGO
     Dosage: UNK
     Route: 065
     Dates: start: 20140607, end: 20140607
  103. SUMILU [Concomitant]
     Active Substance: FELBINAC
     Indication: ARTHRALGIA
     Dosage: UNK
     Route: 065
     Dates: start: 20120126, end: 20120208
  104. XYLOCAINE                          /00033402/ [Concomitant]
     Active Substance: LIDOCAINE HYDROCHLORIDE
     Dosage: UNK
     Route: 065
     Dates: start: 20121214, end: 20121214
  105. NEO AMUNOLL [Concomitant]
     Indication: NASOPHARYNGITIS
     Dosage: UNK
     Route: 065
     Dates: start: 20130121, end: 20130129
  106. JAKAVI [Suspect]
     Active Substance: RUXOLITINIB
     Dosage: 10 MG, BID
     Route: 048
     Dates: start: 20120628, end: 20120808
  107. BIO-THREE [Concomitant]
     Active Substance: HERBALS
     Indication: DIARRHOEA
     Dosage: UNK
     Route: 048
     Dates: start: 20120317, end: 20120318
  108. MEDICON                            /00048102/ [Concomitant]
     Active Substance: DEXTROMETHORPHAN HYDROBROMIDE
     Indication: INFLUENZA
     Dosage: UNK
     Route: 048
     Dates: start: 20120626, end: 20120628
  109. ADSORBIN [Concomitant]
     Active Substance: ALUMINUM SILICATE
     Indication: DIARRHOEA
     Dosage: UNK
     Route: 048
     Dates: start: 20121122, end: 20121227
  110. MUCOSTA [Concomitant]
     Active Substance: REBAMIPIDE
     Indication: CATARACT OPERATION
     Dosage: UNK
     Route: 048
     Dates: start: 20130429, end: 20130513
  111. MUCOSTA [Concomitant]
     Active Substance: REBAMIPIDE
     Dosage: 100 MG, UNK
     Route: 048
     Dates: start: 20140724, end: 20140903
  112. LOPERAMIDE [Concomitant]
     Active Substance: LOPERAMIDE
     Indication: DIARRHOEA
     Dosage: 1 MG, UNK
     Route: 048
     Dates: start: 20140904
  113. MAGMITT [Concomitant]
     Active Substance: MAGNESIUM OXIDE
     Indication: CONSTIPATION
     Dosage: 330 MG, TID
     Route: 048
     Dates: start: 20140909
  114. ACICLOVIR [Concomitant]
     Active Substance: ACYCLOVIR
     Indication: PROPHYLAXIS
     Dosage: UNK
     Route: 065
     Dates: start: 20141001
  115. FLOMOX                             /01418603/ [Concomitant]
     Active Substance: CEFCAPENE PIVOXIL HYDROCHLORIDE HYDRATE
     Dosage: UNK
     Route: 065
     Dates: start: 20130628, end: 20130702
  116. GASMOTIN [Concomitant]
     Active Substance: MOSAPRIDE CITRATE
     Indication: GASTROINTESTINAL HYPOMOTILITY
     Dosage: UNK
     Route: 065
  117. KARY UNI                           /00528801/ [Concomitant]
     Active Substance: PIRENOXINE
     Indication: CATARACT
     Dosage: UNK
     Route: 065
     Dates: start: 20120220
  118. MANNITOL. [Concomitant]
     Active Substance: MANNITOL
     Indication: GLAUCOMA
     Dosage: UNK
  119. MEYLON [Concomitant]
     Active Substance: SODIUM BICARBONATE
     Indication: VERTIGO
     Dosage: UNK
  120. MYSLEE [Concomitant]
     Active Substance: ZOLPIDEM TARTRATE
     Indication: INSOMNIA
     Dosage: UNK
     Route: 065
  121. PENTAGIN                           /00052102/ [Concomitant]
     Active Substance: PENTAZOCINE HYDROCHLORIDE
     Indication: CATARACT OPERATION
     Dosage: UNK
  122. DIPHENHYDRAMINE. [Concomitant]
     Active Substance: DIPHENHYDRAMINE
     Indication: RASH
     Dosage: UNK
     Route: 065
     Dates: start: 20131117, end: 20131118
  123. JAKAVI [Suspect]
     Active Substance: RUXOLITINIB
     Dosage: 10 MG, QD
     Route: 048
     Dates: start: 20120809, end: 20120809
  124. VIRUHEXAL [Concomitant]
     Active Substance: ACYCLOVIR
     Dosage: UNK
     Route: 065
     Dates: start: 20120321, end: 20140930
  125. BIO-THREE [Concomitant]
     Active Substance: HERBALS
     Dosage: 3 DF, UNK
     Route: 048
     Dates: start: 20130621, end: 20140902
  126. MUCODYNE [Concomitant]
     Active Substance: CARBOCYSTEINE
     Indication: INFLUENZA
     Dosage: UNK
     Route: 048
     Dates: start: 20120626, end: 20120628
  127. ALBUMIN TANNATE [Concomitant]
     Active Substance: ALBUMIN BOVINE\TANNIC ACID
     Dosage: UNK
     Route: 048
     Dates: start: 20140113, end: 20140815
  128. CALONAL [Concomitant]
     Active Substance: ACETAMINOPHEN
     Indication: PYREXIA
     Dosage: UNK
     Route: 048
     Dates: start: 20131112, end: 20131115
  129. MAGNESIUM OXIDE. [Concomitant]
     Active Substance: MAGNESIUM OXIDE
     Indication: CONSTIPATION
     Dosage: 0.4 G, UNK
     Route: 048
     Dates: start: 20140724, end: 20140821
  130. COCARL [Concomitant]
     Active Substance: ACETAMINOPHEN
     Dosage: 400 MG, UNK
     Route: 048
     Dates: start: 20140904
  131. MIYA-BM [Concomitant]
     Active Substance: CLOSTRIDIUM BUTYRICUM SPORES STRAIN M-55
     Indication: DYSBACTERIOSIS
     Dosage: 1 DF, UNK
     Route: 048
     Dates: start: 20140902
  132. REBAMIPIDE [Concomitant]
     Active Substance: REBAMIPIDE
     Indication: PROPHYLAXIS AGAINST GASTROINTESTINAL ULCER
     Dosage: 100 MG, UNK
     Route: 048
     Dates: start: 20140904
  133. BROCIN [Concomitant]
     Indication: NASOPHARYNGITIS
     Dosage: UNK
     Route: 065
     Dates: start: 20130124, end: 20130129
  134. FLOMOX                             /01418603/ [Concomitant]
     Active Substance: CEFCAPENE PIVOXIL HYDROCHLORIDE HYDRATE
     Dosage: UNK
     Route: 065
     Dates: start: 20130704, end: 20130708
  135. FLOMOX                             /01418603/ [Concomitant]
     Active Substance: CEFCAPENE PIVOXIL HYDROCHLORIDE HYDRATE
     Dosage: UNK
     Route: 065
     Dates: start: 20131119, end: 20131203
  136. MYDRIN-P [Concomitant]
     Active Substance: PHENYLEPHRINE HYDROCHLORIDE\TROPICAMIDE
     Indication: PROPHYLAXIS
     Dosage: UNK
  137. SOLANTAL [Concomitant]
     Active Substance: TIARAMIDE
     Indication: SPINAL COLUMN STENOSIS
     Dosage: UNK
     Route: 065
     Dates: start: 20131015
  138. JAKAVI [Suspect]
     Active Substance: RUXOLITINIB
     Dosage: 10 MG, BID
     Route: 048
     Dates: start: 20120209, end: 20120403
  139. JAKAVI [Suspect]
     Active Substance: RUXOLITINIB
     Dosage: 10 MG, QD
     Route: 048
     Dates: start: 20120627, end: 20120627
  140. JAKAVI [Suspect]
     Active Substance: RUXOLITINIB
     Dosage: 10 MG, BID
     Route: 048
     Dates: start: 20130704, end: 20131002
  141. JAKAVI [Suspect]
     Active Substance: RUXOLITINIB
     Dosage: 10 MG, BID
     Route: 048
     Dates: start: 20140110, end: 20140319
  142. EXJADE [Suspect]
     Active Substance: DEFERASIROX
     Dosage: 125 MG, QOD
     Route: 048
     Dates: start: 20140724
  143. ACINON [Concomitant]
     Active Substance: NIZATIDINE
     Indication: PROPHYLAXIS AGAINST GASTROINTESTINAL ULCER
  144. ZYLORIC [Concomitant]
     Active Substance: ALLOPURINOL
     Dosage: UNK
     Route: 048
     Dates: start: 20120321, end: 20140916
  145. LENDORMIN [Concomitant]
     Active Substance: BROTIZOLAM
     Indication: INSOMNIA
     Dosage: 0.25 MG, UNK
     Route: 048
     Dates: start: 20130313, end: 20140904
  146. MEDICON                            /00048102/ [Concomitant]
     Active Substance: DEXTROMETHORPHAN HYDROBROMIDE
     Dosage: UNK
     Route: 048
     Dates: start: 20130328, end: 20130402
  147. MOHRUS L [Concomitant]
     Active Substance: KETOPROFEN
     Dosage: UNK
     Route: 062
     Dates: start: 20140110, end: 20140929
  148. ADSORBIN [Concomitant]
     Active Substance: ALUMINUM SILICATE
     Dosage: UNK
     Route: 048
     Dates: start: 20140113, end: 20140815
  149. MUCOSTA [Concomitant]
     Active Substance: REBAMIPIDE
     Indication: PROPHYLAXIS AGAINST GASTROINTESTINAL ULCER
     Dosage: UNK
     Route: 048
     Dates: start: 20120313, end: 20120316
  150. COCARL [Concomitant]
     Active Substance: ACETAMINOPHEN
     Indication: HEADACHE
     Dosage: UNK
     Route: 048
     Dates: start: 20120126, end: 20120706
  151. BESTRON [Concomitant]
     Active Substance: CEFMENOXIME HYDROCHLORIDE
     Indication: GLAUCOMA
     Dosage: UNK
     Route: 065
     Dates: start: 20120316, end: 20120430
  152. FLOMOX                             /01418603/ [Concomitant]
     Active Substance: CEFCAPENE PIVOXIL HYDROCHLORIDE HYDRATE
     Dosage: UNK
     Route: 065
     Dates: start: 20131112, end: 20131117
  153. CEFDINIR. [Concomitant]
     Active Substance: CEFDINIR
     Indication: TOOTH EXTRACTION
     Dosage: UNK
     Route: 065
     Dates: start: 20120817, end: 20120820
  154. PICOSULFAT [Concomitant]
     Indication: CONSTIPATION
     Dosage: UNK
     Route: 065
     Dates: start: 20140908, end: 20140908
  155. RINDERON VG [Concomitant]
     Active Substance: BETAMETHASONE VALERATE\GENTAMICIN SULFATE
     Indication: STOMATITIS
     Dosage: UNK
     Route: 065
     Dates: start: 20120720, end: 20121010
  156. SOLACET F [Concomitant]
     Indication: VERTIGO
     Dosage: UNK
  157. VEGAMOX [Concomitant]
     Active Substance: MOXIFLOXACIN HYDROCHLORIDE
     Indication: GLAUCOMA SURGERY
     Dosage: UNK
     Route: 065
     Dates: start: 20120316, end: 20120722

REACTIONS (28)
  - Abdominal distension [Unknown]
  - Pneumonia [Recovered/Resolved]
  - Headache [Not Recovered/Not Resolved]
  - Insomnia [Unknown]
  - Dysstasia [Unknown]
  - Blood lactate dehydrogenase increased [Unknown]
  - Electrocardiogram T wave abnormal [Unknown]
  - Muscular weakness [Unknown]
  - Ascites [Unknown]
  - Fall [Recovered/Resolved]
  - Urinary tract infection [Recovered/Resolved]
  - Chronic obstructive pulmonary disease [Unknown]
  - Disease progression [Unknown]
  - Diarrhoea [Unknown]
  - Vertigo [Unknown]
  - Dizziness [Unknown]
  - Fall [Recovered/Resolved]
  - Oedema peripheral [Unknown]
  - Depression [Unknown]
  - Altered state of consciousness [Recovered/Resolved]
  - Anaemia [Unknown]
  - Bone contusion [Recovering/Resolving]
  - Splenomegaly [Unknown]
  - Lymphocyte count decreased [Recovered/Resolved]
  - Pollakiuria [Unknown]
  - Disuse syndrome [Not Recovered/Not Resolved]
  - Fall [Recovered/Resolved]
  - Pyrexia [Unknown]

NARRATIVE: CASE EVENT DATE: 20140228
